FAERS Safety Report 5649359-8 (Version None)
Quarter: 2008Q1

REPORT INFORMATION
  Report Type: 
  Country: None (occurrence: None)
  Receive Date: 20080304
  Receipt Date: 20080122
  Transmission Date: 20080703
  Serious: No
  Sender: FDA-Public Use
  Company Number: US-BAYER-200812161NA

PATIENT
  Age: 47 Year
  Sex: Female

DRUGS (1)
  1. ULTRAVIST PHARMACY BULK PACKAGE 300 [Suspect]
     Route: 042
     Dates: start: 20080109, end: 20080109

REACTIONS (1)
  - URTICARIA [None]
